FAERS Safety Report 8397435-1 (Version None)
Quarter: 2012Q2

REPORT INFORMATION
  Report Type: 
  Country: None (occurrence: None)
  Receive Date: 20120529
  Receipt Date: 20120529
  Transmission Date: 20120825
  Serious: Yes (Life-Threatening)
  Sender: FDA-Public Use
  Company Number: None

PATIENT
  Age: 17 Year
  Sex: Female
  Weight: 61 kg

DRUGS (1)
  1. LUPRON DEPOT [Suspect]
     Dosage: 11.25MG 1X IM  1 TIME
     Route: 030

REACTIONS (2)
  - BLOOD PRESSURE INCREASED [None]
  - ANAPHYLACTIC REACTION [None]
